FAERS Safety Report 14821242 (Version 1)
Quarter: 2018Q2

REPORT INFORMATION
  Report Type: Report from Study
  Country: AU (occurrence: AU)
  Receive Date: 20180427
  Receipt Date: 20180427
  Transmission Date: 20180711
  Serious: Yes (Death, Hospitalization)
  Sender: FDA-Public Use
  Company Number: AU-SANOFI-AVENTIS-2013SA075148

PATIENT
  Age: 65 Year
  Sex: Male
  Weight: 82.9 kg

DRUGS (29)
  1. HYDROZOLE CREAM [Concomitant]
     Route: 061
     Dates: start: 200909
  2. METHOTREXATE. [Suspect]
     Active Substance: METHOTREXATE
     Indication: RHEUMATOID ARTHRITIS
     Route: 048
     Dates: start: 20130402, end: 20130719
  3. FOLIC ACID. [Suspect]
     Active Substance: FOLIC ACID
     Indication: PROPHYLAXIS
     Route: 048
     Dates: start: 2006
  4. ENDONE [Concomitant]
     Active Substance: OXYCODONE HYDROCHLORIDE
     Route: 048
     Dates: start: 20110905, end: 2013
  5. MYLANTA [Concomitant]
     Active Substance: ALUMINUM HYDROXIDE\DIMETHICONE\MAGNESIUM HYDROXIDE
     Route: 048
     Dates: start: 20130818, end: 20130818
  6. SPIRIVA [Concomitant]
     Active Substance: TIOTROPIUM BROMIDE MONOHYDRATE
     Route: 065
  7. FISH OIL [Concomitant]
     Active Substance: FISH OIL
     Indication: PROPHYLAXIS
     Route: 048
     Dates: start: 2006, end: 20130722
  8. ENDEP [Concomitant]
     Active Substance: AMITRIPTYLINE HYDROCHLORIDE
     Route: 048
     Dates: start: 20120113, end: 20120507
  9. SAR153191 [Suspect]
     Active Substance: SARILUMAB
     Indication: RHEUMATOID ARTHRITIS
     Route: 058
     Dates: start: 20110531, end: 20130206
  10. OLANZAPINE. [Concomitant]
     Active Substance: OLANZAPINE
     Route: 048
     Dates: start: 201302, end: 20130326
  11. SYMBICORT [Concomitant]
     Active Substance: BUDESONIDE\FORMOTEROL FUMARATE DIHYDRATE
     Route: 065
     Dates: start: 2005
  12. PARACETAMOL [Concomitant]
     Active Substance: ACETAMINOPHEN
     Route: 065
  13. FLAXSEED [Concomitant]
     Active Substance: FLAX SEED
     Indication: PROPHYLAXIS
     Route: 048
     Dates: start: 2006, end: 20130722
  14. HEPARIN [Concomitant]
     Active Substance: HEPARIN SODIUM
     Indication: PROPHYLAXIS
     Route: 058
     Dates: start: 20130809
  15. TETANUS TOXOID [Concomitant]
     Active Substance: TETANUS TOXOIDS
     Route: 030
     Dates: start: 201302
  16. VITAMIN B [Concomitant]
     Active Substance: VITAMIN B
     Indication: PROPHYLAXIS
     Route: 048
     Dates: start: 2006, end: 20130722
  17. ENDEP [Concomitant]
     Active Substance: AMITRIPTYLINE HYDROCHLORIDE
     Route: 048
     Dates: start: 20120507, end: 20130326
  18. ANAESTHETICS, GENERAL [Concomitant]
     Active Substance: UNSPECIFIED INGREDIENT
     Route: 042
     Dates: start: 20130215, end: 20130515
  19. ANTIBIOTICS [Concomitant]
     Active Substance: UNSPECIFIED INGREDIENT
     Indication: LOWER RESPIRATORY TRACT INFECTION
     Route: 048
     Dates: start: 20130818
  20. PANTOPRAZOLE [Concomitant]
     Active Substance: PANTOPRAZOLE
     Indication: PROPHYLAXIS
     Route: 048
     Dates: start: 20130819
  21. XYLOCAINE VISCOUS [Concomitant]
     Active Substance: LIDOCAINE HYDROCHLORIDE
     Indication: PROPHYLAXIS
     Route: 048
     Dates: start: 20130814
  22. NILSTAT [Concomitant]
     Active Substance: NYSTATIN
     Indication: PROPHYLAXIS
     Route: 048
     Dates: start: 20130814
  23. METHOTREXATE. [Suspect]
     Active Substance: METHOTREXATE
     Indication: RHEUMATOID ARTHRITIS
     Route: 048
     Dates: start: 2006, end: 20130326
  24. OMEGA-3 ACIDS [Concomitant]
     Active Substance: OMEGA-3 FATTY ACIDS
     Indication: PROPHYLAXIS
     Route: 048
     Dates: start: 2006, end: 20130722
  25. PREDNISONE. [Concomitant]
     Active Substance: PREDNISONE
     Route: 048
     Dates: start: 201302, end: 201304
  26. MEPILEX [Concomitant]
     Active Substance: SILICON
     Route: 003
     Dates: start: 201303
  27. COLOXYL WITH SENNA [Concomitant]
     Active Substance: DOCUSATE\SENNOSIDES
     Indication: PROPHYLAXIS
     Route: 048
     Dates: start: 20130809
  28. MOVICOL [Concomitant]
     Active Substance: POLYETHYLENE GLYCOL 3350\POTASSIUM CHLORIDE\SODIUM BICARBONATE\SODIUM CHLORIDE
     Indication: PROPHYLAXIS
     Route: 048
     Dates: start: 20130809
  29. SODIUM BICARBONATE. [Concomitant]
     Active Substance: SODIUM BICARBONATE
     Indication: PROPHYLAXIS
     Route: 048
     Dates: start: 20130814

REACTIONS (5)
  - Postoperative wound infection [Recovering/Resolving]
  - Upper respiratory tract infection [Unknown]
  - Pathological fracture [Recovered/Resolved]
  - Lung squamous cell carcinoma metastatic [Fatal]
  - Rheumatoid arthritis [Not Recovered/Not Resolved]

NARRATIVE: CASE EVENT DATE: 201304
